FAERS Safety Report 12649489 (Version 3)
Quarter: 2016Q4

REPORT INFORMATION
  Report Type: Spontaneous
  Country: JP (occurrence: JP)
  Receive Date: 20160812
  Receipt Date: 20161123
  Transmission Date: 20170207
  Serious: Yes (Hospitalization, Other)
  Sender: FDA-Public Use
  Company Number: JP-SA-2016SA146482

PATIENT
  Age: 57 Year
  Sex: Male
  Weight: 55 kg

DRUGS (8)
  1. LORAZEPAM. [Suspect]
     Active Substance: LORAZEPAM
     Indication: INSOMNIA
     Route: 048
     Dates: start: 201407, end: 20160822
  2. MYSLEE [Suspect]
     Active Substance: ZOLPIDEM TARTRATE
     Indication: ANALGESIC THERAPY
     Dosage: 30MG-10MG, TWICE DAILY
     Route: 048
     Dates: start: 201209, end: 20160727
  3. LEXAPRO [Concomitant]
     Active Substance: ESCITALOPRAM OXALATE
     Route: 065
  4. BELSOMRA [Concomitant]
     Active Substance: SUVOREXANT
     Route: 065
  5. OLANZAPINE. [Concomitant]
     Active Substance: OLANZAPINE
     Route: 065
  6. ZOLPIDEM [Concomitant]
     Active Substance: ZOLPIDEM\ZOLPIDEM TARTRATE
     Route: 065
  7. SEROQUEL [Suspect]
     Active Substance: QUETIAPINE FUMARATE
     Indication: SCHIZOPHRENIA
     Route: 048
     Dates: start: 20140814, end: 20160727
  8. ROZEREM [Concomitant]
     Active Substance: RAMELTEON
     Route: 065

REACTIONS (6)
  - Pneumonia aspiration [Recovered/Resolved]
  - Withdrawal syndrome [Recovered/Resolved]
  - Eating disorder [Recovered/Resolved]
  - Delirium [Recovered/Resolved]
  - Intentional overdose [Unknown]
  - Off label use [Unknown]
